FAERS Safety Report 14963711 (Version 1)
Quarter: 2018Q2

REPORT INFORMATION
  Report Type: Spontaneous
  Country: KR (occurrence: KR)
  Receive Date: 20180601
  Receipt Date: 20180601
  Transmission Date: 20180711
  Serious: Yes (Other)
  Sender: FDA-Public Use
  Company Number: KR-VIIV HEALTHCARE LIMITED-KR2018097577

PATIENT
  Sex: Female

DRUGS (1)
  1. LAMIVUDINE. [Suspect]
     Active Substance: LAMIVUDINE
     Indication: CHRONIC HEPATITIS B
     Dosage: UNK
     Route: 065

REACTIONS (3)
  - Infection [Unknown]
  - Viral mutation identified [Unknown]
  - Hepatic enzyme increased [Unknown]
